FAERS Safety Report 12993641 (Version 1)
Quarter: 2016Q4

REPORT INFORMATION
  Report Type: Spontaneous
  Country: US (occurrence: US)
  Receive Date: 20161201
  Receipt Date: 20161201
  Transmission Date: 20170207
  Serious: No
  Sender: FDA-Public Use
  Company Number: None

PATIENT
  Sex: Male

DRUGS (2)
  1. DULOXETINE HYDROCHLORIDE. [Suspect]
     Active Substance: DULOXETINE HYDROCHLORIDE
     Route: 048
     Dates: start: 20161022
  2. DULOXETINE 60MG BRECKENRIDGE [Suspect]
     Active Substance: DULOXETINE
     Route: 048
     Dates: start: 20161119

REACTIONS (2)
  - Inappropriate schedule of drug administration [None]
  - Product use issue [None]

NARRATIVE: CASE EVENT DATE: 20161022
